FAERS Safety Report 6129102-9 (Version None)
Quarter: 2009Q1

REPORT INFORMATION
  Report Type: 
  Country: None (occurrence: None)
  Receive Date: 20090324
  Receipt Date: 20090312
  Transmission Date: 20090719
  Serious: Yes (Hospitalization, Other)
  Sender: FDA-Public Use
  Company Number: DE-JNJFOC-20080303494

PATIENT
  Age: 41 Year
  Sex: Female
  Weight: 53 kg

DRUGS (4)
  1. REMICADE [Suspect]
     Dosage: AFTER REINITIATION, 3 OR 4 INFUSIONS (DATES NOT PROVIDED), THEN STOPPED
     Route: 042
  2. REMICADE [Suspect]
     Indication: COLITIS ULCERATIVE
     Route: 042
  3. METHOTREXATE [Suspect]
     Indication: COLITIS ULCERATIVE
  4. PREDNISOLONE [Suspect]
     Indication: COLITIS ULCERATIVE

REACTIONS (3)
  - DRUG INEFFECTIVE [None]
  - MENINGITIS LISTERIA [None]
  - PANCYTOPENIA [None]
